FAERS Safety Report 5218501-5 (Version None)
Quarter: 2007Q1

REPORT INFORMATION
  Report Type: 
  Country: None (occurrence: None)
  Receive Date: 20070123
  Receipt Date: 20070123
  Transmission Date: 20070707
  Serious: Yes (Death)
  Sender: FDA-Public Use
  Company Number: None

PATIENT
  Sex: Male
  Weight: 105.2345 kg

DRUGS (1)
  1. GADOLINIUM [Suspect]
     Indication: VENOGRAM
     Dates: start: 20050715, end: 20050715

REACTIONS (1)
  - NEPHROGENIC FIBROSING DERMOPATHY [None]
